FAERS Safety Report 13214133 (Version 1)
Quarter: 2017Q1

REPORT INFORMATION
  Report Type: Report from Study
  Country: US (occurrence: US)
  Receive Date: 20170210
  Receipt Date: 20170210
  Transmission Date: 20170428
  Serious: Yes (Other)
  Sender: FDA-Public Use
  Company Number: US-VIFOR (INTERNATIONAL) INC.-VIT-2017-01439

PATIENT

DRUGS (1)
  1. VELTASSA [Suspect]
     Active Substance: PATIROMER
     Indication: PRODUCT USED FOR UNKNOWN INDICATION
     Dates: start: 20160907

REACTIONS (8)
  - Diarrhoea [Unknown]
  - Abasia [Unknown]
  - Influenza like illness [Unknown]
  - Transfusion [Unknown]
  - Blood count abnormal [Unknown]
  - Skin disorder [Unknown]
  - Cardiac disorder [Unknown]
  - Peripheral swelling [Unknown]
